FAERS Safety Report 7192945-7 (Version None)
Quarter: 2010Q4

REPORT INFORMATION
  Report Type: 
  Country: None (occurrence: None)
  Receive Date: 20101223
  Receipt Date: 20101220
  Transmission Date: 20110411
  Serious: Yes (Hospitalization, Other)
  Sender: FDA-Public Use
  Company Number: US-SANOFI-AVENTIS-2010SA067164

PATIENT
  Age: 70 Year
  Sex: Male

DRUGS (11)
  1. LOVENOX [Suspect]
     Indication: ATRIAL FIBRILLATION
     Dosage: AT 6AM AND 6 PM
     Route: 065
     Dates: start: 20091113, end: 20091116
  2. LOVENOX [Suspect]
     Indication: SURGERY
     Dosage: AT 6AM AND 6 PM
     Route: 065
     Dates: start: 20091113, end: 20091116
  3. LOVENOX [Suspect]
     Dosage: AT 6 AM AND 6 PM
     Route: 065
     Dates: start: 20091101, end: 20091101
  4. LOVENOX [Suspect]
     Dosage: AT 6 AM AND 6 PM
     Route: 065
     Dates: start: 20091101, end: 20091101
  5. SYNTHROID [Concomitant]
  6. COUMADIN [Concomitant]
  7. ASPIRIN [Concomitant]
  8. RESTORIL [Concomitant]
  9. NAMENDA [Concomitant]
  10. REQUIP [Concomitant]
  11. CARBIDOPA [Concomitant]

REACTIONS (10)
  - ABDOMINAL DISTENSION [None]
  - ASTHENIA [None]
  - DIZZINESS [None]
  - ECCHYMOSIS [None]
  - HAEMATOCRIT DECREASED [None]
  - HAEMOGLOBIN DECREASED [None]
  - HAEMORRHAGIC ANAEMIA [None]
  - HALLUCINATION [None]
  - NAUSEA [None]
  - POST PROCEDURAL HAEMORRHAGE [None]
